FAERS Safety Report 21460422 (Version 2)
Quarter: 2022Q4

REPORT INFORMATION
  Report Type: Report from Study
  Country: US (occurrence: US)
  Receive Date: 20221014
  Receipt Date: 20221214
  Transmission Date: 20230113
  Serious: No
  Sender: FDA-Public Use
  Company Number: US-ABBVIE-4142258

PATIENT
  Sex: Female

DRUGS (2)
  1. HUMIRA [Suspect]
     Active Substance: ADALIMUMAB
     Indication: Rheumatoid arthritis
     Route: 058
  2. HUMIRA [Suspect]
     Active Substance: ADALIMUMAB
     Route: 058

REACTIONS (8)
  - Sciatica [Unknown]
  - Peripheral swelling [Unknown]
  - Pain in extremity [Unknown]
  - Ophthalmological examination abnormal [Unknown]
  - Joint lock [Unknown]
  - Cyst [Unknown]
  - Infusion [Unknown]
  - Gait inability [Recovering/Resolving]
